FAERS Safety Report 5197741-8 (Version None)
Quarter: 2006Q4

REPORT INFORMATION
  Report Type: 
  Country: None (occurrence: None)
  Receive Date: 20061227
  Receipt Date: 20061213
  Transmission Date: 20070319
  Serious: Yes (Hospitalization)
  Sender: FDA-Public Use
  Company Number: 2006136623

PATIENT
  Age: 64 Year
  Sex: Male

DRUGS (27)
  1. SU-011, 248 (SUNITINB MALATE) [Suspect]
     Indication: METASTATIC RENAL CELL CARCINOMA
     Dosage: 37.5 MG (1 IN 1 D, ORAL)
     Route: 048
     Dates: start: 20060202, end: 20061015
  2. HYDROCORTISONE [Concomitant]
  3. PANTOPRAZOL [Concomitant]
  4. FLUDROCORTISONE ACETATE [Concomitant]
  5. THEOPHYLLINE [Concomitant]
  6. VALSARTAN [Concomitant]
  7. AMLODIPINE BESILATE (AMLODIPINE) [Concomitant]
  8. MOLSIDOMINE [Concomitant]
  9. METOPROLOL SUCCINATE [Concomitant]
  10. INSULIN ASPART [Concomitant]
  11. INSULIN HUMAN [Concomitant]
  12. SIMETICONE [Concomitant]
  13. FUROSEMIDE [Concomitant]
  14. CEFUROXIME AXETIL [Concomitant]
  15. NOVALGIN (METAMIZOLE SODIUM) [Concomitant]
  16. CALCIUM SANDOZ FORTE (CALCIUM CARBONATE, CALCIUM LACTOGLUCONATE) [Concomitant]
  17. SODIUM POLYSTYRENE SULFONATE [Concomitant]
  18. EPOETIN ALFA [Concomitant]
  19. ALFACALCIDOL [Concomitant]
  20. DIOVAN HCT [Concomitant]
  21. LOPERAMIDE HYDROCHLORIDE [Concomitant]
  22. UREA [Concomitant]
  23. SPIRONOLACTONE [Concomitant]
  24. ACETYLCYSTEINE [Concomitant]
  25. FERROUS SUCCINATE [Concomitant]
  26. FOLIC ACID [Concomitant]
  27. SODIUM CHLORIDE [Concomitant]

REACTIONS (5)
  - ANAEMIA [None]
  - DEHYDRATION [None]
  - DIARRHOEA [None]
  - HAEMODIALYSIS [None]
  - RENAL FAILURE ACUTE [None]
